FAERS Safety Report 9168966 (Version 4)
Quarter: 2015Q2

REPORT INFORMATION
  Report Type: Spontaneous
  Country: US (occurrence: US)
  Receive Date: 20130318
  Receipt Date: 20150518
  Transmission Date: 20150821
  Serious: Yes (Hospitalization, Disabling, Other)
  Sender: FDA-Public Use
  Company Number: US-009507513-1303USA007557

PATIENT
  Sex: Male
  Weight: 80.73 kg

DRUGS (6)
  1. FOSAMAX [Suspect]
     Active Substance: ALENDRONATE SODIUM
     Indication: OSTEOPENIA
  2. ALENDRONATE SODIUM. [Suspect]
     Active Substance: ALENDRONATE SODIUM
     Indication: OSTEOPOROSIS
     Dosage: 35 MG, UNK
     Route: 048
  3. ALENDRONATE SODIUM. [Suspect]
     Active Substance: ALENDRONATE SODIUM
     Indication: OSTEOPENIA
  4. FOSAMAX [Suspect]
     Active Substance: ALENDRONATE SODIUM
     Indication: OSTEOPOROSIS
     Dosage: 70 MG, QW
     Route: 048
     Dates: start: 2002, end: 2012
  5. ALENDRONATE SODIUM. [Suspect]
     Active Substance: ALENDRONATE SODIUM
     Indication: OSTEOPOROSIS
     Dosage: 35 MG, UNK
     Route: 048
  6. ALENDRONATE SODIUM. [Suspect]
     Active Substance: ALENDRONATE SODIUM
     Indication: OSTEOPENIA

REACTIONS (32)
  - Gun shot wound [Not Recovered/Not Resolved]
  - Removal of internal fixation [Unknown]
  - Ulcer [Unknown]
  - Viral hepatitis carrier [Unknown]
  - Hip arthroplasty [Unknown]
  - Paraplegia [Not Recovered/Not Resolved]
  - Arthralgia [Unknown]
  - Intramedullary rod insertion [Unknown]
  - Fracture nonunion [Not Recovered/Not Resolved]
  - Osteoarthritis [Not Recovered/Not Resolved]
  - Pain in extremity [Not Recovered/Not Resolved]
  - Hypertension [Unknown]
  - Femur fracture [Unknown]
  - Spinal fracture [Not Recovered/Not Resolved]
  - Hip arthroplasty [Unknown]
  - Fall [Unknown]
  - Sleep apnoea syndrome [Not Recovered/Not Resolved]
  - Fall [Unknown]
  - Joint instability [Unknown]
  - Burns first degree [Recovering/Resolving]
  - Arthralgia [Not Recovered/Not Resolved]
  - Femur fracture [Unknown]
  - Low turnover osteopathy [Unknown]
  - Arthralgia [Not Recovered/Not Resolved]
  - Calcific deposits removal [Unknown]
  - Single functional kidney [Unknown]
  - Extraskeletal ossification [Unknown]
  - Joint dislocation [Not Recovered/Not Resolved]
  - Meniscus injury [Unknown]
  - Exostosis [Unknown]
  - Pain in extremity [Not Recovered/Not Resolved]
  - Drug abuse [Unknown]

NARRATIVE: CASE EVENT DATE: 2002
